FAERS Safety Report 9223152 (Version 1)
Quarter: 2013Q2

REPORT INFORMATION
  Report Type: Spontaneous
  Country: MX (occurrence: MX)
  Receive Date: 20130410
  Receipt Date: 20130410
  Transmission Date: 20140414
  Serious: Yes (Other)
  Sender: FDA-Public Use
  Company Number: PHHY2013MX034148

PATIENT
  Age: 83 Year
  Sex: Male

DRUGS (2)
  1. ONBREZ [Suspect]
     Indication: CHRONIC OBSTRUCTIVE PULMONARY DISEASE
     Dosage: 150 UG, QD
     Dates: start: 20120608, end: 20130110
  2. ONBREZ [Suspect]
     Dosage: 150 UG, QD

REACTIONS (3)
  - Lung neoplasm malignant [Not Recovered/Not Resolved]
  - Body temperature increased [Recovered/Resolved]
  - Cough [Recovered/Resolved]
